FAERS Safety Report 22137051 (Version 1)
Quarter: 2023Q1

REPORT INFORMATION
  Report Type: Spontaneous
  Country: US (occurrence: US)
  Receive Date: 20230324
  Receipt Date: 20230324
  Transmission Date: 20230418
  Serious: No
  Sender: FDA-Public Use
  Company Number: US-009507513-2303USA007982

PATIENT
  Sex: Male

DRUGS (1)
  1. WELIREG [Suspect]
     Active Substance: BELZUTIFAN
     Indication: Ductal adenocarcinoma of pancreas
     Route: 048

REACTIONS (2)
  - Off label use [Unknown]
  - No adverse event [Unknown]
